FAERS Safety Report 4554531-4 (Version None)
Quarter: 2005Q1

REPORT INFORMATION
  Report Type: 
  Country: None (occurrence: None)
  Receive Date: 20050114
  Receipt Date: 20040107
  Transmission Date: 20050727
  Serious: Yes (Hospitalization)
  Sender: FDA-Public Use
  Company Number: GXKR2004US00585

PATIENT
  Age: 68 Year
  Sex: Male

DRUGS (4)
  1. METFORMIN (NGX) (METFORMIN) UNKNOWN [Suspect]
     Indication: DIABETES MELLITUS
     Dosage: 500 MG, BID; 850 MG, BID
  2. METFORMIN (NGX) (METFORMIN) UNKNOWN [Suspect]
     Indication: DIABETES MELLITUS
     Dosage: 500 MG, BID; 850 MG, BID
  3. ASPIRIN [Concomitant]
  4. MULTIVITAMINS (ASCORBIC ACID, ERGOCALCIFEROL, FOLIC ACID, NICOTINAMIED [Concomitant]

REACTIONS (4)
  - HEPATIC TRAUMA [None]
  - HEPATITIS CHOLESTATIC [None]
  - PRURITUS [None]
  - WEIGHT DECREASED [None]
